FAERS Safety Report 7877281-5 (Version None)
Quarter: 2011Q4

REPORT INFORMATION
  Report Type: 
  Country: None (occurrence: None)
  Receive Date: 20111031
  Receipt Date: 20111024
  Transmission Date: 20120403
  Serious: Yes (Hospitalization, Other)
  Sender: FDA-Public Use
  Company Number: JP-ABBOTT-11P-087-0862120-00

PATIENT
  Sex: Female

DRUGS (6)
  1. L-CARBOCISTEINE [Concomitant]
     Indication: TINNITUS
     Dates: start: 20110908
  2. CLARITHROMYCIN [Suspect]
     Indication: OTITIS MEDIA
     Dates: start: 20110926, end: 20110930
  3. L-CARBOCISTEINE [Concomitant]
     Dates: start: 20110915
  4. L-CARBOCISTEINE [Concomitant]
     Dates: start: 20110926
  5. CLARITHROMYCIN [Suspect]
     Indication: TINNITUS
     Route: 048
     Dates: start: 20110908, end: 20110925
  6. MUCODYNE [Suspect]
     Indication: OTITIS MEDIA
     Route: 048
     Dates: start: 20110908, end: 20110930

REACTIONS (4)
  - RASH [None]
  - ORAL MUCOSA EROSION [None]
  - PYREXIA [None]
  - CONJUNCTIVAL HYPERAEMIA [None]
